FAERS Safety Report 12392543 (Version 1)
Quarter: 2016Q2

REPORT INFORMATION
  Report Type: Spontaneous
  Country: US (occurrence: US)
  Receive Date: 20160523
  Receipt Date: 20160523
  Transmission Date: 20160815
  Serious: Yes (Other)
  Sender: FDA-Public Use
  Company Number: US-TEVA-661681ACC

PATIENT
  Sex: Female

DRUGS (3)
  1. PARAGARD T 380A [Suspect]
     Active Substance: COPPER
     Route: 065
     Dates: end: 20160509
  2. PARAGARD T 380A [Suspect]
     Active Substance: COPPER
     Route: 065
  3. PARAGARD T 380A [Suspect]
     Active Substance: COPPER
     Dates: start: 20160509

REACTIONS (1)
  - Device dislocation [Recovered/Resolved]
